FAERS Safety Report 10086610 (Version 3)
Quarter: 2014Q2

REPORT INFORMATION
  Report Type: Report from Study
  Country: DE (occurrence: DE)
  Receive Date: 20140418
  Receipt Date: 20140624
  Transmission Date: 20141212
  Serious: Yes (Other)
  Sender: FDA-Public Use
  Company Number: DE-ABBVIE-14P-062-1225107-00

PATIENT
  Age: 48 Year
  Sex: Male
  Weight: 75 kg

DRUGS (2)
  1. HUMIRA [Suspect]
     Indication: CROHN^S DISEASE
     Dosage: UNK.
     Route: 058
     Dates: start: 201307, end: 201404
  2. AZATHIOPRINE [Concomitant]
     Indication: CROHN^S DISEASE
     Route: 048

REACTIONS (1)
  - Anal fistula [Recovered/Resolved]
